FAERS Safety Report 4340466-9 (Version None)
Quarter: 2004Q2

REPORT INFORMATION
  Report Type: 
  Country: None (occurrence: None)
  Receive Date: 20040414
  Receipt Date: 20040408
  Transmission Date: 20050107
  Serious: Yes (Hospitalization)
  Sender: FDA-Public Use
  Company Number: US-JNJFOC-20040402104

PATIENT
  Age: 91 Year
  Sex: Female
  Weight: 58.514 kg

DRUGS (9)
  1. PANCREASE (PANCRELIPASE) UNSPECIFIED [Suspect]
     Indication: DRUG USE FOR UNKNOWN INDICATION
  2. INSULIN [Concomitant]
  3. LASIX [Concomitant]
  4. PREDNISONE [Concomitant]
  5. SERAX [Concomitant]
  6. PREVACID [Concomitant]
  7. CLONAZEPAM [Concomitant]
  8. LANOXIN [Concomitant]
  9. K-DUR 10 [Concomitant]

REACTIONS (2)
  - MYOCARDIAL INFARCTION [None]
  - PNEUMONIA [None]
